FAERS Safety Report 10483310 (Version 2)
Quarter: 2014Q4

REPORT INFORMATION
  Report Type: Spontaneous
  Country: DE (occurrence: DE)
  Receive Date: 20140930
  Receipt Date: 20141017
  Transmission Date: 20150528
  Serious: Yes (Life-Threatening, Hospitalization)
  Sender: FDA-Public Use
  Company Number: DE-AUROBINDO-AUR-APL-2014-10273

PATIENT
  Age: 21 Year
  Sex: Female

DRUGS (7)
  1. KETOPROFEN. [Suspect]
     Active Substance: KETOPROFEN
     Indication: PRODUCT USED FOR UNKNOWN INDICATION
     Dosage: 30 TABLETS OF 50 MG, 1.5 G, UNK
     Route: 048
  2. NICOTINIC ACID [Suspect]
     Active Substance: NIACIN
     Indication: PRODUCT USED FOR UNKNOWN INDICATION
     Dosage: 56 TABLETS OF 500 MG, 28 G, UNK
     Route: 048
  3. AMLODIPINE [Suspect]
     Active Substance: AMLODIPINE BESYLATE
     Indication: PRODUCT USED FOR UNKNOWN INDICATION
     Dosage: 60 TABLETS OF 5 MG (300 MG), UNK
     Route: 048
  4. GABAPENTIN FILM-COATED TABLET [Suspect]
     Active Substance: GABAPENTIN
     Indication: PRODUCT USED FOR UNKNOWN INDICATION
     Dosage: 40 TABLETS OF 400 MG, 16 G, UNK
     Route: 048
  5. CARVEDILOL FILM-COATED TABLETS [Suspect]
     Active Substance: CARVEDILOL
     Indication: PRODUCT USED FOR UNKNOWN INDICATION
     Dosage: 70 TABLETS OF 25 MG (1750 MG), UNK
     Route: 048
  6. AMITRIPTYLINE [Suspect]
     Active Substance: AMITRIPTYLINE
     Indication: PRODUCT USED FOR UNKNOWN INDICATION
     Dosage: 60 TABLETS OF 100 MG, 6 G, UNK
     Route: 048
  7. TORSEMIDE. [Suspect]
     Active Substance: TORSEMIDE
     Indication: PRODUCT USED FOR UNKNOWN INDICATION
     Dosage: 50 TABLETS OF 10 MG, 500 MG, UNK
     Route: 048

REACTIONS (13)
  - Cardiac arrest [Recovered/Resolved]
  - Loss of consciousness [None]
  - Pulse absent [None]
  - Intentional overdose [None]
  - Injury associated with device [None]
  - Cardiac failure [None]
  - Ventricular hypokinesia [None]
  - Toxicity to various agents [Recovered/Resolved]
  - Suicide attempt [Recovered/Resolved]
  - Ejection fraction decreased [None]
  - Femoral artery dissection [None]
  - Circulatory collapse [Recovered/Resolved]
  - Compartment syndrome [None]
